FAERS Safety Report 4382970-3 (Version None)
Quarter: 2004Q2

REPORT INFORMATION
  Report Type: 
  Country: None (occurrence: None)
  Receive Date: 20040617
  Receipt Date: 20040525
  Transmission Date: 20050107
  Serious: Yes (Hospitalization)
  Sender: FDA-Public Use
  Company Number: CIP04001224

PATIENT
  Age: 78 Year
  Sex: 0

DRUGS (1)
  1. ACTONEL [Suspect]
     Indication: OSTEOPOROSIS
     Dosage: 2.5 MG, DAILY, ORAL
     Route: 048
     Dates: start: 20040501, end: 20040511

REACTIONS (2)
  - CHOLANGITIS [None]
  - JAUNDICE CHOLESTATIC [None]
